FAERS Safety Report 12369880 (Version 1)
Quarter: 2016Q2

REPORT INFORMATION
  Report Type: Spontaneous
  Country: BG (occurrence: BG)
  Receive Date: 20160516
  Receipt Date: 20160516
  Transmission Date: 20160815
  Serious: Yes (Hospitalization, Other)
  Sender: FDA-Public Use
  Company Number: BG-ASTRAZENECA-2016SE50488

PATIENT
  Age: 66 Year
  Sex: Male
  Weight: 90 kg

DRUGS (5)
  1. ASPIRIN. [Concomitant]
     Active Substance: ASPIRIN
  2. AMLODIPINE [Concomitant]
     Active Substance: AMLODIPINE BESYLATE
  3. BRILIQUE [Suspect]
     Active Substance: TICAGRELOR
     Dosage: 180 MG AND THEN 2 X 90 MG DAILY
     Route: 048
  4. LISINOPRIL. [Concomitant]
     Active Substance: LISINOPRIL
  5. AMIODARONE [Concomitant]
     Active Substance: AMIODARONE

REACTIONS (2)
  - Vascular stent thrombosis [Unknown]
  - Drug dose omission [Unknown]
